FAERS Safety Report 23681940 (Version 4)
Quarter: 2024Q4

REPORT INFORMATION
  Report Type: Spontaneous
  Country: US (occurrence: US)
  Receive Date: 20240328
  Receipt Date: 20241003
  Transmission Date: 20250115
  Serious: No
  Sender: GLAXOSMITHKLINE
  Company Number: US-GSKCCFUS-Case-01965845_AE-109268

PATIENT
  Sex: Female

DRUGS (1)
  1. BENLYSTA [Suspect]
     Active Substance: BELIMUMAB
     Indication: Product used for unknown indication
     Dosage: 200 MG, WE
     Route: 058

REACTIONS (6)
  - Injection site pain [Unknown]
  - Exposure via skin contact [Unknown]
  - Injection site nodule [Not Recovered/Not Resolved]
  - Incorrect dose administered [Unknown]
  - Accidental exposure to product [Unknown]
  - Product complaint [Unknown]
